FAERS Safety Report 10601622 (Version 1)
Quarter: 2014Q4

REPORT INFORMATION
  Report Type: Spontaneous
  Country: GR (occurrence: GR)
  Receive Date: 20141124
  Receipt Date: 20141124
  Transmission Date: 20150529
  Serious: Yes (Other)
  Sender: FDA-Public Use
  Company Number: GR-SA-2014SA157306

PATIENT
  Sex: Female

DRUGS (2)
  1. LANTUS [Suspect]
     Active Substance: INSULIN GLARGINE
     Route: 065
  2. APIDRA [Suspect]
     Active Substance: INSULIN GLULISINE
     Route: 065

REACTIONS (2)
  - Helicobacter infection [Unknown]
  - Blood glucose increased [Unknown]
